FAERS Safety Report 8859203 (Version 4)
Quarter: 2012Q4

REPORT INFORMATION
  Report Type: 
  Country: US (occurrence: US)
  Receive Date: 20121024
  Receipt Date: 20121220
  Transmission Date: 20130627
  Serious: Yes (Other)
  Sender: FDA-Public Use
  Company Number: US-PFIZER INC-2012261761

PATIENT
  Age: 50 Year
  Sex: Female
  Weight: 66 kg

DRUGS (5)
  1. SUTENT [Suspect]
     Indication: RENAL CANCER
     Dosage: 50 mg, cyclic (42 day cycle)
     Dates: start: 20120705
  2. LISINOPRIL [Concomitant]
     Dosage: 10 mg, 2x/day (BID)
  3. HYDROCHLOROTHIAZIDE [Concomitant]
     Dosage: 25 mg, 1x/day (Daily)
  4. ATIVAN [Concomitant]
     Indication: SLEEP DISORDER
     Dosage: 1 mg, UNK
  5. ATIVAN [Concomitant]
     Indication: NAUSEA

REACTIONS (15)
  - Hypertension [Unknown]
  - Fatigue [Unknown]
  - Dyspepsia [Unknown]
  - Palmar-plantar erythrodysaesthesia syndrome [Unknown]
  - Blood pressure increased [Unknown]
  - Dizziness [Unknown]
  - Blood creatinine increased [Unknown]
  - Chills [Unknown]
  - Dysgeusia [Unknown]
  - Paraesthesia oral [Unknown]
  - Yellow skin [Unknown]
  - Hair colour changes [Unknown]
  - Platelet count decreased [Unknown]
  - Disease progression [Unknown]
  - Renal cancer [Unknown]
